FAERS Safety Report 16724803 (Version 1)
Quarter: 2019Q3

REPORT INFORMATION
  Report Type: Spontaneous
  Country: US (occurrence: US)
  Receive Date: 20190704
  Receipt Date: 20190704
  Transmission Date: 20191005
  Serious: Yes (Hospitalization)
  Sender: FDA-Public Use
  Company Number: None

PATIENT
  Age: 72 Year
  Sex: Male
  Weight: 200 kg

DRUGS (3)
  1. OLANZAPINE. [Suspect]
     Active Substance: OLANZAPINE
     Dates: end: 20190623
  2. CYCLOPHOSPHAMIDE. [Concomitant]
     Active Substance: CYCLOPHOSPHAMIDE
  3. DOXORUBICIN [Concomitant]
     Active Substance: DOXORUBICIN

REACTIONS (8)
  - Haemoglobin decreased [None]
  - Confusional state [None]
  - Lethargy [None]
  - Pharyngeal disorder [None]
  - Pyrexia [None]
  - Platelet count decreased [None]
  - Dysphagia [None]
  - Neutrophil count decreased [None]

NARRATIVE: CASE EVENT DATE: 20190628
